FAERS Safety Report 10167866 (Version 1)
Quarter: 2014Q2

REPORT INFORMATION
  Report Type: Spontaneous
  Country: SK (occurrence: SK)
  Receive Date: 20140512
  Receipt Date: 20140512
  Transmission Date: 20141212
  Serious: Yes (Hospitalization)
  Sender: FDA-Public Use
  Company Number: SK-GLAXOSMITHKLINE-B0981612A

PATIENT
  Age: 24 Year
  Sex: Female

DRUGS (8)
  1. BENLYSTA [Suspect]
     Indication: SYSTEMIC LUPUS ERYTHEMATOSUS
     Route: 065
     Dates: start: 20120824
  2. PREDNISON [Concomitant]
  3. MEDROL [Concomitant]
     Dosage: 4MG PER DAY
  4. MYCOPHENOLATE [Concomitant]
     Dosage: 500MG PER DAY
  5. CYCLOPHOSPHAMIDE [Concomitant]
  6. HYDROXYCHLOROQUINE [Concomitant]
     Dosage: 200MG PER DAY
  7. KETOSTERIL [Concomitant]
  8. FURON [Concomitant]
     Dosage: 40MG PER DAY

REACTIONS (12)
  - Cardiac failure [Unknown]
  - Lupus nephritis [Unknown]
  - Asthma [Recovered/Resolved]
  - Skin disorder [Recovered/Resolved]
  - Renal disorder [Recovered/Resolved]
  - Diastolic dysfunction [Unknown]
  - Dilatation ventricular [Unknown]
  - Ejection fraction decreased [Unknown]
  - Urinary tract infection [Unknown]
  - Dermatitis allergic [Unknown]
  - Disease progression [Recovered/Resolved]
  - Hypertensive heart disease [Unknown]
